FAERS Safety Report 6754982-3 (Version None)
Quarter: 2010Q2

REPORT INFORMATION
  Report Type: 
  Country: None (occurrence: None)
  Receive Date: 20100602
  Receipt Date: 20100528
  Transmission Date: 20101027
  Serious: Yes (Other)
  Sender: FDA-Public Use
  Company Number: 2009SP038724

PATIENT
  Age: 28 Year
  Sex: Female

DRUGS (2)
  1. DESLORATADINE [Suspect]
     Indication: RHINITIS SEASONAL
     Dosage: 5 MG;PRN;PO
     Route: 048
     Dates: end: 20080919
  2. CONTRACEPTIVES [Concomitant]

REACTIONS (6)
  - ABNORMAL DREAMS [None]
  - EYE PRURITUS [None]
  - HALLUCINATION [None]
  - NASAL CONGESTION [None]
  - RHINORRHOEA [None]
  - SNEEZING [None]
